FAERS Safety Report 12680445 (Version 2)
Quarter: 2016Q3

REPORT INFORMATION
  Report Type: Spontaneous
  Country: US (occurrence: US)
  Receive Date: 20160824
  Receipt Date: 20160826
  Transmission Date: 20161109
  Serious: Yes (Other)
  Sender: FDA-Public Use
  Company Number: US-HORIZON-PEN-0400-2016

PATIENT
  Age: 35 Year
  Sex: Male

DRUGS (2)
  1. PENNSAID [Suspect]
     Active Substance: DICLOFENAC SODIUM
     Indication: CONTUSION
     Dosage: 1 SAMPLE PACKET BID
  2. DICLOFENAC [Concomitant]
     Active Substance: DICLOFENAC

REACTIONS (7)
  - Off label use [Unknown]
  - Chemical injury [Unknown]
  - Application site rash [Unknown]
  - Dermatitis atopic [Unknown]
  - Application site swelling [Unknown]
  - Application site erythema [Unknown]
  - Application site discharge [Unknown]
